FAERS Safety Report 8065008-6 (Version None)
Quarter: 2012Q1

REPORT INFORMATION
  Report Type: 
  Country: None (occurrence: None)
  Receive Date: 20120124
  Receipt Date: 20100202
  Transmission Date: 20120608
  Serious: No
  Sender: FDA-Public Use
  Company Number: 2010BI003857

PATIENT
  Age: 55 Year
  Sex: Male

DRUGS (1)
  1. TYSABRI [Suspect]
     Indication: MULTIPLE SCLEROSIS
     Route: 042
     Dates: start: 20080721

REACTIONS (3)
  - MUSCLE SPASTICITY [None]
  - ARTHRALGIA [None]
  - DRUG EFFECT DECREASED [None]
